FAERS Safety Report 4359480-2 (Version None)
Quarter: 2004Q2

REPORT INFORMATION
  Report Type: 
  Country: None (occurrence: None)
  Receive Date: 20040512
  Receipt Date: 20040430
  Transmission Date: 20050107
  Serious: Yes (Hospitalization)
  Sender: FDA-Public Use
  Company Number: 163-20785-04030626

PATIENT
  Age: 39 Year
  Sex: Female

DRUGS (1)
  1. THALOMID [Suspect]
     Indication: BREAST CANCER FEMALE
     Dosage: 200 MG, QD, ORAL
     Route: 048
     Dates: start: 20040317

REACTIONS (2)
  - BACTERAEMIA [None]
  - HYPERTENSION [None]
